FAERS Safety Report 20677545 (Version 2)
Quarter: 2022Q2

REPORT INFORMATION
  Report Type: Spontaneous
  Country: CA (occurrence: CA)
  Receive Date: 20220406
  Receipt Date: 20220414
  Transmission Date: 20220720
  Serious: Yes (Hospitalization, Other)
  Sender: FDA-Public Use
  Company Number: CA-UNITED THERAPEUTICS-UNT-2022-006908

PATIENT
  Sex: Male

DRUGS (2)
  1. REMODULIN [Suspect]
     Active Substance: TREPROSTINIL
     Indication: Pulmonary arterial hypertension
     Dosage: UNK, CONTINUING
     Route: 058
     Dates: start: 20140219
  2. REMODULIN [Suspect]
     Active Substance: TREPROSTINIL
     Dosage: 0.110 ?G/KG, CONTINUING
     Route: 058

REACTIONS (12)
  - COVID-19 [Unknown]
  - Pneumonia [Unknown]
  - Anaemia [Unknown]
  - Dyspnoea [Unknown]
  - Infusion site mass [Recovered/Resolved]
  - Infusion site warmth [Unknown]
  - Infusion site infection [Unknown]
  - Infusion site discolouration [Unknown]
  - Infusion site induration [Unknown]
  - Purulent discharge [Unknown]
  - Infusion site discharge [Unknown]
  - Peripheral swelling [Unknown]
